FAERS Safety Report 18540303 (Version 1)
Quarter: 2020Q4

REPORT INFORMATION
  Report Type: Spontaneous
  Country: US (occurrence: US)
  Receive Date: 20201124
  Receipt Date: 20201124
  Transmission Date: 20210114
  Serious: No
  Sender: FDA-Public Use
  Company Number: US-002147023-PHEH2014US007327

PATIENT
  Sex: Female
  Weight: 67.9 kg

DRUGS (2)
  1. TOBI PODHALER [Suspect]
     Active Substance: TOBRAMYCIN
     Indication: CYSTIC FIBROSIS
     Dosage: 4 DOSAGE FORM, BID (4 DF, BID)
     Route: 055
  2. TOBI PODHALER [Suspect]
     Active Substance: TOBRAMYCIN
     Indication: PSEUDOMONAS INFECTION

REACTIONS (5)
  - Cough [Unknown]
  - Haemoptysis [Unknown]
  - Drug intolerance [Unknown]
  - Throat irritation [Unknown]
  - Feeling abnormal [Unknown]
